FAERS Safety Report 19688296 (Version 1)
Quarter: 2021Q3

REPORT INFORMATION
  Report Type: Spontaneous
  Country: CA (occurrence: CA)
  Receive Date: 20210811
  Receipt Date: 20210811
  Transmission Date: 20211014
  Serious: Yes (Hospitalization, Other)
  Sender: FDA-Public Use
  Company Number: CA-B.I. PHARMACEUTICALS,INC./RIDGEFIELD-2021-BI-120701

PATIENT
  Age: 51 Year
  Sex: Male

DRUGS (1)
  1. JARDIANCE [Suspect]
     Active Substance: EMPAGLIFLOZIN
     Indication: TYPE 2 DIABETES MELLITUS
     Route: 048

REACTIONS (6)
  - Fournier^s gangrene [Recovering/Resolving]
  - Scrotal cellulitis [Recovering/Resolving]
  - Scrotal oedema [Recovering/Resolving]
  - Skin necrosis [Recovering/Resolving]
  - Discharge [Recovering/Resolving]
  - Scrotal erythema [Recovering/Resolving]
